FAERS Safety Report 8965693 (Version 1)
Quarter: 2012Q4

REPORT INFORMATION
  Report Type: Spontaneous
  Country: US (occurrence: None)
  Receive Date: 20121212
  Receipt Date: 20121212
  Transmission Date: 20130627
  Serious: No
  Sender: FDA-Public Use
  Company Number: None

PATIENT
  Age: 51 Year
  Sex: Female
  Weight: 59.88 kg

DRUGS (1)
  1. TUSSIN DM [Suspect]
     Indication: COUGH
     Dosage: 2 doses is all I took
2tsp every 4 hours po
     Route: 048
     Dates: start: 20121210, end: 20121211

REACTIONS (8)
  - Loss of consciousness [None]
  - Hypersomnia [None]
  - Balance disorder [None]
  - Vision blurred [None]
  - Nausea [None]
  - Dyskinesia [None]
  - Pallor [None]
  - Skin injury [None]
